FAERS Safety Report 9931932 (Version 1)
Quarter: 2014Q1

REPORT INFORMATION
  Report Type: Spontaneous
  Country: US (occurrence: None)
  Receive Date: 20140227
  Receipt Date: 20140227
  Transmission Date: 20141002
  Serious: Yes (Disabling)
  Sender: FDA-Public Use
  Company Number: None

PATIENT
  Age: 41 Year
  Sex: Female
  Weight: 78.02 kg

DRUGS (9)
  1. ABILIFY [Suspect]
     Indication: POST-TRAUMATIC STRESS DISORDER
     Dosage: 20 MG ?1 PILL DAILY?ONCE IN THE MORNING?MOUTH
     Route: 048
     Dates: start: 201201
  2. ABILIFY [Suspect]
     Indication: SCHIZOPHRENIA
     Dosage: 20 MG ?1 PILL DAILY?ONCE IN THE MORNING?MOUTH
     Route: 048
     Dates: start: 201201
  3. ZOLOFT [Suspect]
  4. BUPROPION HCL XL [Suspect]
  5. AMBIEN [Suspect]
  6. ZOLPIDEN [Concomitant]
  7. BENZTROPINE MESYLATE [Concomitant]
  8. LANTUS [Concomitant]
  9. NOVOLOG [Concomitant]

REACTIONS (3)
  - Tremor [None]
  - Trismus [None]
  - Blood glucose increased [None]
